FAERS Safety Report 21621508 (Version 2)
Quarter: 2023Q1

REPORT INFORMATION
  Report Type: Spontaneous
  Country: CN (occurrence: CN)
  Receive Date: 20221121
  Receipt Date: 20230103
  Transmission Date: 20230417
  Serious: Yes (Death)
  Sender: FDA-Public Use
  Company Number: CN-ABBVIE-4206391

PATIENT

DRUGS (7)
  1. VENCLEXTA [Suspect]
     Active Substance: VENETOCLAX
     Indication: Acute myeloid leukaemia
     Dosage: 400 MILLIGRAM
     Route: 048
  2. VENCLEXTA [Suspect]
     Active Substance: VENETOCLAX
     Indication: Acute myeloid leukaemia
     Dosage: 200 MILLIGRAM
     Route: 048
  3. VENCLEXTA [Suspect]
     Active Substance: VENETOCLAX
     Indication: Acute myeloid leukaemia
     Dosage: 100 MILLIGRAM
     Route: 048
  4. AZACITIDINE [Suspect]
     Active Substance: AZACITIDINE
     Indication: Acute myeloid leukaemia
     Dosage: D1-7
     Route: 058
  5. GILTERITINIB [Suspect]
     Active Substance: GILTERITINIB
     Indication: Acute myeloid leukaemia
     Dosage: EVERY 28 DAYS AS A COURSE OF TREATMENT
     Route: 065
  6. SORAFENIB [Suspect]
     Active Substance: SORAFENIB
     Indication: Acute myeloid leukaemia
     Dosage: 400 MG
     Route: 048
  7. DECITABINE [Suspect]
     Active Substance: DECITABINE
     Indication: Acute myeloid leukaemia
     Dosage: 20 MG/M2
     Route: 042

REACTIONS (20)
  - Disseminated intravascular coagulation [Fatal]
  - Renal impairment [Recovering/Resolving]
  - Periorbital infection [Recovering/Resolving]
  - Hypoalbuminaemia [Recovering/Resolving]
  - Pneumonia fungal [Recovering/Resolving]
  - Platelet count decreased [Recovering/Resolving]
  - White blood cell count decreased [Recovering/Resolving]
  - Pyrexia [Recovering/Resolving]
  - Blood bilirubin increased [Recovering/Resolving]
  - Neutrophil count decreased [Recovering/Resolving]
  - Anal infection [Recovering/Resolving]
  - Diarrhoea [Recovering/Resolving]
  - Anaemia [Recovering/Resolving]
  - Pneumonia bacterial [Recovering/Resolving]
  - Vomiting [Recovering/Resolving]
  - Haemorrhage [Recovering/Resolving]
  - Electrolyte imbalance [Recovering/Resolving]
  - Cardiac dysfunction [Recovering/Resolving]
  - Hypofibrinogenaemia [Recovering/Resolving]
  - Urinary tract infection [Recovering/Resolving]
